FAERS Safety Report 11555697 (Version 1)
Quarter: 2015Q3

REPORT INFORMATION
  Report Type: Spontaneous
  Country: US (occurrence: US)
  Receive Date: 20150903
  Receipt Date: 20150903
  Transmission Date: 20151125
  Serious: No
  Sender: FDA-Public Use
  Company Number: US-ELI_LILLY_AND_COMPANY-US201011002793

PATIENT
  Sex: Male

DRUGS (11)
  1. HUMALOG [Suspect]
     Active Substance: INSULIN LISPRO
     Dosage: 12 U, UNK
     Dates: start: 20101107
  2. LEVEMIR [Concomitant]
     Active Substance: INSULIN DETEMIR
     Dosage: 35 U, EACH EVENING
  3. LEVEMIR [Concomitant]
     Active Substance: INSULIN DETEMIR
     Dosage: 40 U, EACH MORNING
  4. HUMALOG [Suspect]
     Active Substance: INSULIN LISPRO
     Dosage: 14 U, UNK
  5. HUMALOG [Suspect]
     Active Substance: INSULIN LISPRO
     Dosage: UNK, AS NEEDED
  6. HUMALOG [Suspect]
     Active Substance: INSULIN LISPRO
     Dosage: 8 U, UNK
  7. HUMALOG [Suspect]
     Active Substance: INSULIN LISPRO
     Indication: DIABETES MELLITUS
     Dosage: UNK, AS NEEDED
     Dates: start: 2005
  8. HUMALOG [Suspect]
     Active Substance: INSULIN LISPRO
     Dosage: 15 U, UNK
  9. HUMALOG [Suspect]
     Active Substance: INSULIN LISPRO
     Indication: DIABETES MELLITUS
     Dosage: 15 U, UNK
  10. HUMALOG [Suspect]
     Active Substance: INSULIN LISPRO
     Dosage: 20 U, 4/D
     Dates: start: 2005
  11. HUMALOG [Suspect]
     Active Substance: INSULIN LISPRO
     Dosage: 20 U, 4/D

REACTIONS (6)
  - Blood glucose decreased [Unknown]
  - Blood glucose decreased [Recovered/Resolved]
  - Blood glucose decreased [Recovered/Resolved]
  - Drug ineffective [Recovered/Resolved]
  - Blood glucose increased [Unknown]
  - Blood glucose increased [Recovered/Resolved]

NARRATIVE: CASE EVENT DATE: 20100411
